FAERS Safety Report 9120662 (Version 1)
Quarter: 2013Q1

REPORT INFORMATION
  Report Type: Spontaneous
  Country: US (occurrence: US)
  Receive Date: 20130226
  Receipt Date: 20130226
  Transmission Date: 20140127
  Serious: Yes (Death)
  Sender: FDA-Public Use
  Company Number: US-BAXTER-2013BAX006607

PATIENT
  Sex: Female

DRUGS (6)
  1. DIANEAL PD2 [Suspect]
     Indication: PERITONEAL DIALYSIS
     Route: 033
     Dates: end: 20130219
  2. DIANEAL PD2 [Suspect]
     Indication: PERITONEAL DIALYSIS
  3. DIANEAL PD2 [Suspect]
     Indication: PERITONEAL DIALYSIS
     Route: 033
     Dates: end: 20130219
  4. DIANEAL PD2 [Suspect]
     Indication: PERITONEAL DIALYSIS
  5. DIANEAL PD2 [Suspect]
     Indication: PERITONEAL DIALYSIS
     Route: 033
     Dates: end: 20130219
  6. DIANEAL PD2 [Suspect]
     Indication: PERITONEAL DIALYSIS

REACTIONS (1)
  - Renal failure chronic [Fatal]
